FAERS Safety Report 5246692-9 (Version None)
Quarter: 2007Q1

REPORT INFORMATION
  Report Type: 
  Country: None (occurrence: None)
  Receive Date: 20070222
  Receipt Date: 20070222
  Transmission Date: 20070707
  Serious: No
  Sender: FDA-Public Use
  Company Number: None

PATIENT
  Age: 34 Year
  Sex: Female
  Weight: 68.9467 kg

DRUGS (1)
  1. TYSABRI [Suspect]
     Indication: MULTIPLE SCLEROSIS
     Dosage: 300MG  EVERY MONTH  IV
     Route: 042
     Dates: start: 20070221

REACTIONS (4)
  - FEELING ABNORMAL [None]
  - MONOPLEGIA [None]
  - MUSCLE SPASMS [None]
  - SCREAMING [None]
